FAERS Safety Report 14424343 (Version 4)
Quarter: 2018Q4

REPORT INFORMATION
  Report Type: Report from Study
  Country: FR (occurrence: FR)
  Receive Date: 20180123
  Receipt Date: 20181212
  Transmission Date: 20190204
  Serious: Yes (Life-Threatening, Hospitalization)
  Sender: FDA-Public Use
  Company Number: FR-JNJFOC-20180125408

PATIENT
  Age: 59 Year
  Sex: Male
  Weight: 79 kg

DRUGS (4)
  1. ZANOSAR [Suspect]
     Active Substance: STREPTOZOCIN
     Indication: PANCREATIC NEUROENDOCRINE TUMOUR
     Route: 065
     Dates: start: 20160408, end: 20160820
  2. FLUOROURACIL. [Suspect]
     Active Substance: FLUOROURACIL
     Indication: PRODUCT USED FOR UNKNOWN INDICATION
     Route: 065
     Dates: end: 20160820
  3. ADRIAMYCIN [Suspect]
     Active Substance: DOXORUBICIN HYDROCHLORIDE
     Indication: PANCREATIC NEUROENDOCRINE TUMOUR
     Route: 065
     Dates: start: 20160408, end: 20160820
  4. STREPTOZOCINE [Suspect]
     Active Substance: STREPTOZOCIN
     Indication: PANCREATIC NEUROENDOCRINE TUMOUR
     Route: 065

REACTIONS (4)
  - Lung disorder [Unknown]
  - Off label use [Unknown]
  - Product use in unapproved indication [Unknown]
  - Cardiac failure [Recovered/Resolved]

NARRATIVE: CASE EVENT DATE: 20160408
